FAERS Safety Report 9295974 (Version 1)
Quarter: 2013Q1

REPORT INFORMATION
  Report Type: Spontaneous
  Country: US (occurrence: None)
  Receive Date: 20130103
  Receipt Date: 20130103
  Transmission Date: 20140127
  Serious: Yes (Hospitalization, Other)
  Sender: FDA-Public Use
  Company Number: AUR-APL-2012-02132

PATIENT
  Age: 43 Year
  Sex: Female

DRUGS (9)
  1. AMOXICILLIN (AMOXICILLIN) [Suspect]
     Indication: PRODUCT USED FOR UNKNOWN INDICATION
     Dates: start: 20120413
  2. BENLYSTA [Suspect]
     Route: 042
     Dates: start: 20120402
  3. LOPRESSOR (METOPROLOL TARTRATE) [Concomitant]
  4. METHOTREXATE (METHOTREXATE) [Concomitant]
  5. LISINOPRIL (LISINOPRIL) [Concomitant]
  6. CALCIUM (CALCIUM) [Concomitant]
  7. CYANOCOBALAMIN (CYANOCOBALAMIN) [Concomitant]
  8. COMPLEX (NICOTINAM. W/PYRIDOXI. HCL/RIBOFL./THIAM.HCL) [Concomitant]
  9. FOLIC ACID (FOLIC ACID) [Concomitant]

REACTIONS (1)
  - Hypersensitivity [None]
